FAERS Safety Report 12785042 (Version 1)
Quarter: 2016Q3

REPORT INFORMATION
  Report Type: Report from Study
  Country: DE (occurrence: DE)
  Receive Date: 20160927
  Receipt Date: 20160927
  Transmission Date: 20161109
  Serious: Yes (Other)
  Sender: FDA-Public Use
  Company Number: DE-ROCHE-1833702

PATIENT

DRUGS (2)
  1. BEVACIZUMAB [Suspect]
     Active Substance: BEVACIZUMAB
     Indication: MALIGNANT GLIOMA
     Route: 042
  2. IRINOTECAN [Suspect]
     Active Substance: IRINOTECAN
     Indication: MALIGNANT GLIOMA
     Dosage: UPTO 340 MG/M2 DEPENDING ON USE OF EIAD
     Route: 065

REACTIONS (10)
  - Gastrointestinal haemorrhage [Unknown]
  - Rash [Unknown]
  - Anaemia [Unknown]
  - Bone marrow failure [Unknown]
  - Infection [Unknown]
  - Thrombosis [Unknown]
  - Nausea [Unknown]
  - Epistaxis [Unknown]
  - Electrolyte imbalance [Unknown]
  - Hypertension [Unknown]
